FAERS Safety Report 9266931 (Version 1)
Quarter: 2013Q2

REPORT INFORMATION
  Report Type: Spontaneous
  Country: US (occurrence: US)
  Receive Date: 20130502
  Receipt Date: 20130502
  Transmission Date: 20140414
  Serious: No
  Sender: FDA-Public Use
  Company Number: US-009507513-1305USA000756

PATIENT
  Age: 73 Year
  Sex: Female

DRUGS (3)
  1. SINGULAIR [Suspect]
     Indication: ASTHMA
  2. SEVELAMER [Concomitant]
  3. FLUTICASONE [Concomitant]

REACTIONS (3)
  - Dyspnoea [Unknown]
  - Cough [Unknown]
  - Insomnia [Unknown]
